FAERS Safety Report 5952015-X (Version None)
Quarter: 2008Q4

REPORT INFORMATION
  Report Type: 
  Country: None (occurrence: None)
  Receive Date: 20081113
  Receipt Date: 20071128
  Transmission Date: 20090506
  Serious: Yes (Hospitalization)
  Sender: FDA-Public Use
  Company Number: A0696326A

PATIENT
  Age: 70 Year
  Sex: Female

DRUGS (1)
  1. COREG [Suspect]
     Dosage: 6.25MG TWICE PER DAY
     Route: 048
     Dates: start: 20071127

REACTIONS (2)
  - BLOOD PRESSURE DIASTOLIC DECREASED [None]
  - SYNCOPE [None]
